FAERS Safety Report 4448336-2 (Version None)
Quarter: 2004Q3

REPORT INFORMATION
  Report Type: 
  Country: None (occurrence: None)
  Receive Date: 20040909
  Receipt Date: 20040901
  Transmission Date: 20050211
  Serious: Yes (Hospitalization)
  Sender: FDA-Public Use
  Company Number: 2004231357FR

PATIENT
  Age: 94 Year
  Sex: Female

DRUGS (6)
  1. CORLIPROL (CELIPROLOL HYDROCHLORIDE) TABLET [Suspect]
     Indication: HYPERTENSION
     Dosage: 200 MG/DAY, ORAL
     Route: 048
     Dates: end: 20040622
  2. ALDACTONE [Suspect]
     Dosage: 25 MG/DAY, ORAL
     Route: 048
     Dates: end: 20040622
  3. CLONIDINE [Suspect]
     Dosage: 0.75 MG/DAY, ORAL
     Route: 048
     Dates: end: 20040622
  4. EUPRESSYL (URAPIDIL), CAPSULE [Suspect]
     Dosage: 30 MG, ORAL
     Route: 048
     Dates: end: 20040622
  5. STABLON (TIANEPTINE) [Suspect]
     Dosage: 25 MG/DAY, ORAL
     Route: 048
     Dates: end: 20040622
  6. SERMION (NICERGOLINE) [Suspect]
     Dosage: 3 U, ORAL
     Route: 048
     Dates: end: 20040622

REACTIONS (1)
  - PANCREATITIS [None]
